FAERS Safety Report 16809552 (Version 1)
Quarter: 2019Q3

REPORT INFORMATION
  Report Type: Spontaneous
  Country: US (occurrence: US)
  Receive Date: 20190916
  Receipt Date: 20190916
  Transmission Date: 20191005
  Serious: Yes (Death, Hospitalization)
  Sender: FDA-Public Use
  Company Number: US-MYLANLABS-2019M1084594

PATIENT
  Age: 63 Year
  Sex: Female

DRUGS (4)
  1. TRASTUZUMAB. [Suspect]
     Active Substance: TRASTUZUMAB
     Indication: INVASIVE DUCTAL BREAST CARCINOMA
     Dosage: RECEIVED 6 CYCLES
     Route: 065
  2. DOCETAXEL. [Suspect]
     Active Substance: DOCETAXEL
     Indication: INVASIVE DUCTAL BREAST CARCINOMA
     Dosage: RECEIVED 6 CYCLES
     Route: 065
  3. CARBOPLATIN. [Suspect]
     Active Substance: CARBOPLATIN
     Indication: INVASIVE DUCTAL BREAST CARCINOMA
     Dosage: RECEIVED 6 CYCLES
     Route: 065
  4. PERTUZUMAB. [Suspect]
     Active Substance: PERTUZUMAB
     Indication: INVASIVE DUCTAL BREAST CARCINOMA
     Dosage: RECEIVED 6 CYCLES
     Route: 065

REACTIONS (1)
  - Acute myeloid leukaemia [Fatal]
